FAERS Safety Report 7119669-6 (Version None)
Quarter: 2010Q4

REPORT INFORMATION
  Report Type: 
  Country: None (occurrence: None)
  Receive Date: 20101123
  Receipt Date: 20101112
  Transmission Date: 20110411
  Serious: Yes (Death)
  Sender: FDA-Public Use
  Company Number: US-CELGENEUS-163-21880-10112343

PATIENT
  Sex: Male

DRUGS (8)
  1. REVLIMID [Suspect]
     Indication: MULTIPLE MYELOMA
     Route: 048
     Dates: start: 20091201, end: 20100301
  2. SPIRONOLACTONE [Concomitant]
     Route: 065
  3. K-TAB [Concomitant]
     Route: 065
  4. LASIX [Concomitant]
     Route: 065
  5. ATROVENT [Concomitant]
     Route: 065
  6. COLACE [Concomitant]
     Route: 065
  7. LEVOTHROID [Concomitant]
     Route: 065
  8. NASAREL [Concomitant]
     Route: 065

REACTIONS (1)
  - DEATH [None]
